FAERS Safety Report 8013614-7 (Version None)
Quarter: 2011Q4

REPORT INFORMATION
  Report Type: 
  Country: None (occurrence: None)
  Receive Date: 20111227
  Receipt Date: 20111227
  Transmission Date: 20120403
  Serious: Yes (Life-Threatening)
  Sender: FDA-Public Use
  Company Number: None

PATIENT
  Sex: Male
  Weight: 64.4108 kg

DRUGS (1)
  1. SPIRIVA [Suspect]
     Indication: EMPHYSEMA
     Dosage: 1 OF 10  2 A DAY ORAL
     Route: 048
     Dates: start: 20110501, end: 20111101

REACTIONS (2)
  - THROAT TIGHTNESS [None]
  - CHOKING [None]
